FAERS Safety Report 11635280 (Version 3)
Quarter: 2015Q4

REPORT INFORMATION
  Report Type: Spontaneous
  Country: US (occurrence: US)
  Receive Date: 20151015
  Receipt Date: 20151118
  Transmission Date: 20160304
  Serious: Yes (Other)
  Sender: FDA-Public Use
  Company Number: US-009507513-1510USA004457

PATIENT
  Age: 24 Year
  Sex: Female
  Weight: 68.48 kg

DRUGS (1)
  1. IMPLANON [Suspect]
     Active Substance: ETONOGESTREL
     Indication: CONTRACEPTION
     Dosage: STRENGTH ^68 (UNIT UNKNOWN)^
     Route: 059
     Dates: start: 20120712

REACTIONS (6)
  - Medical device complication [Not Recovered/Not Resolved]
  - Unintended pregnancy [Recovered/Resolved]
  - Drug dose omission [Unknown]
  - Abortion induced [Unknown]
  - Pregnancy with implant contraceptive [Recovered/Resolved]
  - Incorrect drug administration duration [Unknown]

NARRATIVE: CASE EVENT DATE: 2013
